FAERS Safety Report 9868959 (Version 1)
Quarter: 2014Q1

REPORT INFORMATION
  Report Type: Spontaneous
  Country: FR (occurrence: FR)
  Receive Date: 20140205
  Receipt Date: 20140205
  Transmission Date: 20141002
  Serious: Yes (Hospitalization)
  Sender: FDA-Public Use
  Company Number: FR-ROCHE-1343575

PATIENT
  Age: 43 Year
  Sex: Female

DRUGS (3)
  1. HERCEPTIN [Suspect]
     Indication: BREAST CANCER
     Route: 042
     Dates: start: 199705
  2. NOLVADEX [Suspect]
     Indication: BREAST CANCER
     Route: 048
  3. AROMASIN [Suspect]
     Indication: BREAST CANCER
     Route: 048

REACTIONS (1)
  - Myelodysplastic syndrome [Unknown]
